FAERS Safety Report 19768367 (Version 3)
Quarter: 2022Q1

REPORT INFORMATION
  Report Type: Report from Study
  Country: FR (occurrence: FR)
  Receive Date: 20210830
  Receipt Date: 20220204
  Transmission Date: 20220423
  Serious: Yes (Life-Threatening, Hospitalization)
  Sender: FDA-Public Use
  Company Number: FR-SERVIER-S21009521

PATIENT

DRUGS (44)
  1. IVOSIDENIB [Suspect]
     Active Substance: IVOSIDENIB
     Indication: Acute myeloid leukaemia
     Dates: start: 20210706, end: 20210812
  2. IVOSIDENIB [Suspect]
     Active Substance: IVOSIDENIB
     Dosage: UNK
     Dates: start: 20210813, end: 20210823
  3. IVOSIDENIB [Suspect]
     Active Substance: IVOSIDENIB
     Dosage: UNK
     Dates: start: 20210813, end: 20210818
  4. CYTARABINE [Suspect]
     Active Substance: CYTARABINE
     Indication: Acute myeloid leukaemia
     Dosage: 4000 MG, UNKNOWN
     Route: 065
     Dates: start: 20210813, end: 20210818
  5. DAUNORUBICIN [Suspect]
     Active Substance: DAUNORUBICIN
     Indication: Acute myeloid leukaemia
     Dosage: 120 MG, UNKNOWN
     Route: 065
     Dates: start: 20210813, end: 20210815
  6. FUNGIZONE [Concomitant]
     Active Substance: AMPHOTERICIN B
     Indication: Product used for unknown indication
     Dosage: UNK
     Route: 065
     Dates: start: 20210824
  7. DUPHALAC [Concomitant]
     Active Substance: LACTULOSE
     Indication: Product used for unknown indication
     Dosage: 1.0G/15 ML
     Route: 065
     Dates: start: 20210824
  8. TN UNSPECIFIED [Concomitant]
     Indication: Product used for unknown indication
     Dosage: 500 MG
     Route: 065
     Dates: start: 20210824
  9. TN UNSPECIFIED [Concomitant]
     Indication: Product used for unknown indication
     Dosage: 500 MG
     Route: 065
     Dates: start: 20210824
  10. TN UNSPECIFIED [Concomitant]
     Indication: Product used for unknown indication
     Dosage: 2MG/2ML
     Route: 065
     Dates: start: 20210824
  11. VITAMIN K1 [Concomitant]
     Active Substance: PHYTONADIONE
     Indication: Product used for unknown indication
     Dosage: 10 MG/1ML
     Route: 065
     Dates: start: 20210824
  12. NOXAFIL [Concomitant]
     Active Substance: POSACONAZOLE
     Indication: Product used for unknown indication
     Dosage: 300 MG
     Route: 065
     Dates: start: 20210824
  13. FILGRASTIM [Concomitant]
     Active Substance: FILGRASTIM
     Indication: Product used for unknown indication
     Dosage: 30MG/0.5ML
     Route: 065
     Dates: start: 20210824
  14. TN UNSPECIFIED [Concomitant]
     Indication: Product used for unknown indication
     Dosage: 2G
     Route: 065
     Dates: start: 20210824
  15. TN UNSPECIFIED [Concomitant]
     Indication: Product used for unknown indication
     Dosage: 10 MG
     Route: 065
     Dates: start: 20210824
  16. TN UNSPECIFIED [Concomitant]
     Indication: Product used for unknown indication
     Dosage: 100G/2ML
     Route: 065
     Dates: start: 20210824
  17. TN UNSPECIFIED [Concomitant]
     Indication: Product used for unknown indication
     Dosage: 100 MG
     Route: 065
     Dates: start: 20210824
  18. TN UNSPECIFIED [Concomitant]
     Indication: Product used for unknown indication
     Dosage: 100MG
     Route: 065
     Dates: start: 20210824
  19. IMIPENEM [Concomitant]
     Active Substance: IMIPENEM
     Indication: Product used for unknown indication
     Dosage: 500/500 MG
     Route: 065
     Dates: start: 20210824
  20. TN UNSPECIFIED [Concomitant]
     Indication: Product used for unknown indication
     Dosage: 1G
     Route: 065
     Dates: start: 20210824
  21. TN UNSPECIFIED [Concomitant]
     Indication: Product used for unknown indication
     Dosage: UNK
     Route: 065
     Dates: start: 20210824
  22. ALIZAPRIDE HYDROCHLORIDE [Concomitant]
     Active Substance: ALIZAPRIDE HYDROCHLORIDE
     Indication: Product used for unknown indication
     Dosage: 500MG
     Route: 065
     Dates: start: 20210824
  23. CHLORPROMAZINE [Concomitant]
     Active Substance: CHLORPROMAZINE
     Indication: Product used for unknown indication
     Dosage: 25MG
     Route: 065
     Dates: start: 20210824
  24. TN UNSPECIFIED [Concomitant]
     Indication: Product used for unknown indication
     Dosage: UNK
     Route: 065
     Dates: start: 20210824
  25. Ketoderm [Concomitant]
     Indication: Product used for unknown indication
     Dosage: UNK
     Route: 065
     Dates: start: 20210824
  26. SILVER SULFADIAZINE [Concomitant]
     Active Substance: SILVER SULFADIAZINE
     Indication: Product used for unknown indication
     Dosage: UNK
     Route: 065
     Dates: start: 20210824
  27. MICONAZOLE NITRATE [Concomitant]
     Active Substance: MICONAZOLE NITRATE
     Indication: Product used for unknown indication
     Dosage: UNK
     Route: 065
     Dates: start: 20210824
  28. COOPER [Concomitant]
     Indication: Product used for unknown indication
     Dosage: UNK
     Route: 065
     Dates: start: 20210824
  29. BETADINE [Concomitant]
     Active Substance: POVIDONE-IODINE
     Indication: Product used for unknown indication
     Dosage: UNK
     Route: 065
     Dates: start: 20210824
  30. TN UNSPECIFIED [Concomitant]
     Indication: Product used for unknown indication
     Dosage: 10MG/ML
     Route: 065
     Dates: start: 20210824
  31. PRIMPERAN [Concomitant]
     Active Substance: METOCLOPRAMIDE HYDROCHLORIDE
     Indication: Product used for unknown indication
     Dosage: 10MG
     Route: 065
     Dates: start: 20210824
  32. PHLOROGLUCINOL [Concomitant]
     Active Substance: PHLOROGLUCINOL
     Indication: Product used for unknown indication
     Dosage: 40MG/4ML
     Route: 065
     Dates: start: 20210824
  33. POLARAMINE [Concomitant]
     Active Substance: DEXCHLORPHENIRAMINE MALEATE
     Indication: Product used for unknown indication
     Dosage: 5 MG
     Route: 065
     Dates: start: 20210824
  34. TN UNSPECIFIED [Concomitant]
     Indication: Product used for unknown indication
     Dosage: 90 ML
     Route: 065
     Dates: start: 20210824
  35. TN UNSPECIFIED [Concomitant]
     Indication: Product used for unknown indication
     Dosage: 25MG
     Route: 065
     Dates: start: 20210824
  36. TN UNSPECIFIED [Concomitant]
     Indication: Product used for unknown indication
     Dosage: UNK
     Route: 065
     Dates: start: 20210824
  37. TN UNSPECIFIED [Concomitant]
     Indication: Product used for unknown indication
     Dosage: UNK
     Route: 065
     Dates: start: 20210824
  38. TN UNSPECIFIED [Concomitant]
     Indication: Product used for unknown indication
     Dosage: UNK
     Route: 065
     Dates: start: 20210824
  39. TN UNSPECIFIED [Concomitant]
     Indication: Product used for unknown indication
     Dosage: UNK
     Route: 065
     Dates: start: 20210824
  40. TN UNSPECIFIED [Concomitant]
     Indication: Product used for unknown indication
     Dosage: 40MG/4ML
     Route: 065
     Dates: start: 20210824
  41. MINERAL OIL [Concomitant]
     Active Substance: MINERAL OIL
     Indication: Product used for unknown indication
     Dosage: UNK
     Dates: start: 20210824
  42. TN UNSPECIFIED [Concomitant]
     Indication: Product used for unknown indication
     Dosage: 0.50 MG
     Dates: start: 20210824
  43. Eludril [Concomitant]
     Indication: Product used for unknown indication
     Dosage: UNK
     Route: 065
  44. XERACALM A.D [Concomitant]
     Indication: Product used for unknown indication
     Dosage: UNK
     Route: 065

REACTIONS (1)
  - Septic shock [Recovered/Resolved]

NARRATIVE: CASE EVENT DATE: 20210823
